FAERS Safety Report 5766791-2 (Version None)
Quarter: 2008Q2

REPORT INFORMATION
  Report Type: 
  Country: None (occurrence: None)
  Receive Date: 20080610
  Receipt Date: 20080610
  Transmission Date: 20081010
  Serious: Yes (Hospitalization, Other)
  Sender: FDA-Public Use
  Company Number: None

PATIENT
  Age: 59 Year
  Sex: Female
  Weight: 77.1115 kg

DRUGS (1)
  1. SIMVASTATIN [Suspect]
     Dosage: 2X'S A DAY OTIC
     Route: 001

REACTIONS (20)
  - ABDOMINAL PAIN UPPER [None]
  - BACK PAIN [None]
  - BLOOD MAGNESIUM DECREASED [None]
  - DIVERTICULUM [None]
  - DRUG HYPERSENSITIVITY [None]
  - DYSPNOEA [None]
  - DYSURIA [None]
  - ESCHERICHIA URINARY TRACT INFECTION [None]
  - FATIGUE [None]
  - GAIT DISTURBANCE [None]
  - HAEMATURIA [None]
  - HEPATIC STEATOSIS [None]
  - HIATUS HERNIA [None]
  - HYPOKALAEMIA [None]
  - LIVER FUNCTION TEST ABNORMAL [None]
  - METABOLIC ALKALOSIS [None]
  - MYALGIA [None]
  - PAIN [None]
  - PAIN IN EXTREMITY [None]
  - RHABDOMYOLYSIS [None]
